FAERS Safety Report 7312531-5 (Version None)
Quarter: 2011Q1

REPORT INFORMATION
  Report Type: 
  Country: None (occurrence: None)
  Receive Date: 20110224
  Receipt Date: 20110221
  Transmission Date: 20110831
  Serious: Yes (Hospitalization)
  Sender: FDA-Public Use
  Company Number: US-B.I. PHARMACEUTICALS,INC./RIDGEFIELD-2011-BP-01553BP

PATIENT
  Age: 80 Year
  Sex: Female

DRUGS (6)
  1. SPIRIVA [Suspect]
     Indication: DYSPNOEA
  2. AMLODIPINE [Suspect]
  3. HYDROCHLOROTHIAZIDE [Concomitant]
  4. SPIRIVA [Suspect]
     Indication: CHRONIC OBSTRUCTIVE PULMONARY DISEASE
     Dosage: 18 MCG
     Route: 055
     Dates: start: 20070101
  5. NADOLOL [Concomitant]
  6. LEVOXYL [Suspect]

REACTIONS (2)
  - DRUG INEFFECTIVE [None]
  - VOMITING [None]
